FAERS Safety Report 15705495 (Version 1)
Quarter: 2018Q4

REPORT INFORMATION
  Report Type: Report from Study
  Country: CO (occurrence: CO)
  Receive Date: 20181210
  Receipt Date: 20181210
  Transmission Date: 20190205
  Serious: Yes (Other)
  Sender: FDA-Public Use
  Company Number: CO-SA-2018SA331471

PATIENT
  Age: 36 Year
  Sex: Female

DRUGS (2)
  1. INSULIN GLULISINE [Suspect]
     Active Substance: INSULIN GLULISINE
     Indication: TYPE 1 DIABETES MELLITUS
     Dosage: 5 IU, TID
     Route: 058
     Dates: start: 2011
  2. LANTUS [Suspect]
     Active Substance: INSULIN GLARGINE
     Indication: TYPE 1 DIABETES MELLITUS
     Dosage: 26 IU, QD
     Route: 058
     Dates: start: 2011

REACTIONS (4)
  - Foot fracture [Recovering/Resolving]
  - Blood glucose decreased [Recovered/Resolved]
  - Fall [Unknown]
  - Loss of consciousness [Recovered/Resolved]

NARRATIVE: CASE EVENT DATE: 20181119
